FAERS Safety Report 6298425-5 (Version None)
Quarter: 2009Q3

REPORT INFORMATION
  Report Type: 
  Country: None (occurrence: None)
  Receive Date: 20090805
  Receipt Date: 20090727
  Transmission Date: 20100115
  Serious: Yes (Hospitalization, Other)
  Sender: FDA-Public Use
  Company Number: US-ELI_LILLY_AND_COMPANY-US200907006143

PATIENT
  Sex: Female

DRUGS (8)
  1. CYMBALTA [Suspect]
     Indication: LUPUS-LIKE SYNDROME
     Dosage: 60 MG, DAILY (1/D)
     Dates: start: 20010101
  2. NEURONTIN [Concomitant]
     Dosage: 600 MG, 4/D
  3. DIOVAN HCT [Concomitant]
     Dosage: 1 D/F, DAILY (1/D)
  4. TRAMADOL HCL [Concomitant]
     Indication: NEURALGIA
     Dosage: 100 MG, EVERY 6 HRS
  5. COMPAZINE [Concomitant]
     Dosage: 10 MG, AS NEEDED
  6. FLEXERIL [Concomitant]
     Dosage: 10 MG, AS NEEDED
  7. OMEPRAZOLE [Concomitant]
     Dosage: UNK, DAILY (1/D)
  8. XANAX [Concomitant]
     Dosage: 0.25 MG, AS NEEDED

REACTIONS (23)
  - ACUTE RESPIRATORY DISTRESS SYNDROME [None]
  - ADHESION [None]
  - AFFECT LABILITY [None]
  - AREFLEXIA [None]
  - BALANCE DISORDER [None]
  - BLOOD GLUCOSE ABNORMAL [None]
  - CLOSTRIDIAL INFECTION [None]
  - DIABETES MELLITUS [None]
  - DIZZINESS [None]
  - HYPOXIA [None]
  - INTERVERTEBRAL DISC PROTRUSION [None]
  - INTESTINAL OBSTRUCTION [None]
  - INTESTINAL PERFORATION [None]
  - NERVE INJURY [None]
  - NEURALGIA [None]
  - OFF LABEL USE [None]
  - PARAESTHESIA [None]
  - PELVIC ABSCESS [None]
  - RENAL FAILURE [None]
  - SENSORY LOSS [None]
  - SEPSIS [None]
  - STATUS ASTHMATICUS [None]
  - WOUND INFECTION STAPHYLOCOCCAL [None]
